FAERS Safety Report 8819556 (Version 1)
Quarter: 2012Q4

REPORT INFORMATION
  Report Type: 
  Country: US (occurrence: US)
  Receive Date: 20120930
  Receipt Date: 20120930
  Transmission Date: 20130627
  Serious: No
  Sender: FDA-Public Use
  Company Number: US-ASTRAZENECA-2012SE72152

PATIENT
  Age: 29 Year
  Sex: Female
  Weight: 77.1 kg

DRUGS (2)
  1. SEROQUEL XR [Suspect]
     Indication: BIPOLAR DISORDER
     Route: 048
  2. THORAZINE [Concomitant]
     Indication: ANXIETY

REACTIONS (4)
  - Dependence [Unknown]
  - Crying [Unknown]
  - Insomnia [Unknown]
  - Hypervigilance [Unknown]
